FAERS Safety Report 7412211-1 (Version None)
Quarter: 2011Q2

REPORT INFORMATION
  Report Type: 
  Country: None (occurrence: None)
  Receive Date: 20110408
  Receipt Date: 20110408
  Transmission Date: 20111010
  Serious: Yes (Death)
  Sender: FDA-Public Use
  Company Number: None

PATIENT
  Sex: Male
  Weight: 76.2043 kg

DRUGS (3)
  1. CARBOPLATIN [Suspect]
     Dosage: CARBOPLATIN WEEKLY I.V.
     Route: 042
     Dates: start: 20101207, end: 20110121
  2. DASATINIB STARTED ON70 MG DAILY ESCALATED ON 100 MG DAILY BRISTOL MYER [Suspect]
     Indication: NON-SMALL CELL LUNG CANCER
     Dosage: DASATINIB DAILY PO
     Route: 048
     Dates: start: 20101207, end: 20110309
  3. TAXOL [Suspect]
     Dosage: TAXOL WEEKLY I.V.
     Route: 042
     Dates: start: 20101207, end: 20110121

REACTIONS (5)
  - ACUTE RESPIRATORY FAILURE [None]
  - PAIN IN EXTREMITY [None]
  - PNEUMONITIS [None]
  - LUNG INFILTRATION [None]
  - CHEST DISCOMFORT [None]
